FAERS Safety Report 10417699 (Version 2)
Quarter: 2015Q4

REPORT INFORMATION
  Report Type: Spontaneous
  Country: JP (occurrence: JP)
  Receive Date: 20140829
  Receipt Date: 20151102
  Transmission Date: 20160304
  Serious: Yes (Hospitalization)
  Sender: FDA-Public Use
  Company Number: JP-JNJFOC-20140822197

PATIENT
  Age: 75 Year
  Sex: Male

DRUGS (6)
  1. BLOPRESS [Concomitant]
     Active Substance: CANDESARTAN CILEXETIL
     Indication: BLOOD PRESSURE MANAGEMENT
     Route: 048
  2. TAKEPRON [Concomitant]
     Active Substance: LANSOPRAZOLE
     Indication: PROPHYLAXIS
     Route: 048
  3. LEXOTAN [Concomitant]
     Active Substance: BROMAZEPAM
     Indication: PRODUCT USED FOR UNKNOWN INDICATION
     Route: 048
  4. TRAMCET [Suspect]
     Active Substance: ACETAMINOPHEN\TRAMADOL
     Indication: PAIN
     Route: 048
     Dates: start: 2012
  5. OPALMON [Concomitant]
     Active Substance: LIMAPROST
     Indication: PAIN
     Route: 048
  6. LENDORMIN [Concomitant]
     Active Substance: BROTIZOLAM
     Indication: PRODUCT USED FOR UNKNOWN INDICATION
     Dosage: ONE PER DAY
     Route: 048

REACTIONS (7)
  - Blood pressure decreased [Unknown]
  - Gastric cancer [Unknown]
  - Gastric ulcer [Unknown]
  - Blood pressure increased [Unknown]
  - Constipation [Unknown]
  - Tinnitus [Unknown]
  - Insomnia [Unknown]

NARRATIVE: CASE EVENT DATE: 201403
